FAERS Safety Report 7590891-8 (Version None)
Quarter: 2011Q3

REPORT INFORMATION
  Report Type: 
  Country: None (occurrence: None)
  Receive Date: 20110705
  Receipt Date: 20110623
  Transmission Date: 20111222
  Serious: Yes (Other)
  Sender: FDA-Public Use
  Company Number: PHHY2011US56687

PATIENT
  Sex: Male

DRUGS (5)
  1. DIOVAN [Suspect]
     Dosage: 320 MG, UNK
  2. EXFORGE HCT [Suspect]
     Dosage: 10/320/25 MG
  3. DIOVAN [Suspect]
     Dosage: 160 MG, UNK
  4. DIABETES PILLS [Concomitant]
  5. WATER PILLS [Concomitant]

REACTIONS (5)
  - SLEEP APNOEA SYNDROME [None]
  - CARDIAC FAILURE CONGESTIVE [None]
  - OXYGEN CONSUMPTION DECREASED [None]
  - PALPITATIONS [None]
  - DYSPNOEA [None]
